FAERS Safety Report 25070701 (Version 3)
Quarter: 2025Q3

REPORT INFORMATION
  Report Type: Spontaneous
  Country: US (occurrence: US)
  Receive Date: 20250312
  Receipt Date: 20250702
  Transmission Date: 20251021
  Serious: No
  Sender: SANOFI AVENTIS
  Company Number: US-SA-2025SA072530

PATIENT
  Age: 50 Year
  Sex: Female

DRUGS (10)
  1. DUPIXENT [Suspect]
     Active Substance: DUPILUMAB
     Indication: Dermatitis atopic
     Dosage: 300 MG, Q4W
     Route: 058
     Dates: start: 201906
  2. DUPIXENT [Suspect]
     Active Substance: DUPILUMAB
     Dosage: 300 MG, QOW
     Route: 058
  3. DUPIXENT [Suspect]
     Active Substance: DUPILUMAB
     Dosage: 300 MG, QOW
     Route: 058
  4. VALTREX [Concomitant]
     Active Substance: VALACYCLOVIR HYDROCHLORIDE
     Indication: Condition aggravated
     Dosage: 2 DF, BID
     Dates: start: 20240724
  5. EPINEPHRINE [Concomitant]
     Active Substance: EPINEPHRINE
     Indication: Anaphylactic reaction
     Route: 030
     Dates: start: 20111007
  6. ECONAZOLE NITRATE [Concomitant]
     Active Substance: ECONAZOLE NITRATE
     Dosage: MIX 1:1 WITH HYDROCORTISONE VALERATE. APPLY TO AA ON BID/ PRN
     Dates: start: 20230814
  7. LIDEX [Concomitant]
     Active Substance: FLUOCINONIDE
     Dosage: BID, PRN
     Dates: start: 20220519
  8. HALCINONIDE [Concomitant]
     Active Substance: HALCINONIDE
     Indication: Rash
     Dates: start: 20181129, end: 20240724
  9. LOCOID [Concomitant]
     Active Substance: HYDROCORTISONE BUTYRATE
     Dates: start: 20181129
  10. WESTCORT [Concomitant]
     Active Substance: HYDROCORTISONE VALERATE
     Dosage: UNK UNK, BID
     Route: 061
     Dates: start: 20230725, end: 20240724

REACTIONS (12)
  - Chronic actinic dermatitis [Recovered/Resolved]
  - Rebound atopic dermatitis [Unknown]
  - Rash pruritic [Unknown]
  - Photosensitivity reaction [Unknown]
  - Skin irritation [Unknown]
  - Rash erythematous [Recovered/Resolved]
  - Vision blurred [Unknown]
  - Headache [Unknown]
  - Dry eye [Unknown]
  - Arthralgia [Unknown]
  - Dermatitis atopic [Unknown]
  - Inappropriate schedule of product administration [Unknown]

NARRATIVE: CASE EVENT DATE: 20190601
